FAERS Safety Report 25858095 (Version 1)
Quarter: 2025Q3

REPORT INFORMATION
  Report Type: Spontaneous
  Country: IN (occurrence: IN)
  Receive Date: 20250929
  Receipt Date: 20250929
  Transmission Date: 20251021
  Serious: Yes (Death, Life-Threatening, Hospitalization)
  Sender: STRIDES
  Company Number: None

PATIENT
  Age: 59 Year
  Sex: Female

DRUGS (2)
  1. PREDNISOLONE [Suspect]
     Active Substance: PREDNISOLONE
     Indication: Rheumatoid arthritis
     Route: 048
  2. PREDNISOLONE [Suspect]
     Active Substance: PREDNISOLONE
     Indication: Psoriasis
     Route: 048

REACTIONS (7)
  - Strongyloidiasis [Fatal]
  - Gastritis haemorrhagic [Fatal]
  - Disseminated strongyloidiasis [Fatal]
  - Hypokalaemia [Fatal]
  - Seizure [Fatal]
  - Oliguria [Fatal]
  - Haematuria [Fatal]
